FAERS Safety Report 7312638 (Version 2)
Quarter: 2014Q1

REPORT INFORMATION
  Report Type: Spontaneous
  Country: US (occurrence: US)
  Receive Date: 20100310
  Receipt Date: 20140226
  Transmission Date: 20141002
  Serious: No
  Sender: FDA-Public Use
  Company Number: US-BIOGENIDEC-2009BI031114

PATIENT
  Age: 37 Year
  Sex: Female

DRUGS (1)
  1. AVONEX [Suspect]
     Indication: MULTIPLE SCLEROSIS
     Route: 030
     Dates: start: 20090917, end: 20101201

REACTIONS (8)
  - Tremor [Unknown]
  - Agitation [Unknown]
  - Psychomotor hyperactivity [Unknown]
  - Injection site pain [Unknown]
  - Insomnia [Unknown]
  - Influenza like illness [Recovered/Resolved]
  - Anxiety [Unknown]
  - Injection site discomfort [Recovered/Resolved]
